FAERS Safety Report 5745178-2 (Version None)
Quarter: 2008Q2

REPORT INFORMATION
  Report Type: 
  Country: None (occurrence: None)
  Receive Date: 20080521
  Receipt Date: 20080515
  Transmission Date: 20081010
  Serious: Yes (Hospitalization)
  Sender: FDA-Public Use
  Company Number: US-GILEAD-2008-0016472

PATIENT
  Sex: Female

DRUGS (12)
  1. LETAIRIS [Suspect]
     Indication: PULMONARY ARTERIAL HYPERTENSION
     Route: 048
  2. NASONEX [Concomitant]
  3. SPIRIVA [Concomitant]
  4. ASPIRIN [Concomitant]
  5. EVISTA [Concomitant]
  6. BENICAR [Concomitant]
  7. ALLEGRA [Concomitant]
  8. SYNTHROID [Concomitant]
  9. BETAPACE [Concomitant]
  10. ZOCOR [Concomitant]
  11. ADVAIR DISKUS 100/50 [Concomitant]
  12. PROTONIX [Concomitant]

REACTIONS (2)
  - ATRIAL FIBRILLATION [None]
  - OEDEMA PERIPHERAL [None]
